FAERS Safety Report 7332640-4 (Version None)
Quarter: 2011Q1

REPORT INFORMATION
  Report Type: 
  Country: None (occurrence: None)
  Receive Date: 20110304
  Receipt Date: 20110301
  Transmission Date: 20110831
  Serious: No
  Sender: FDA-Public Use
  Company Number: US-TEVA-269362USA

PATIENT
  Age: 36 Year
  Sex: Female
  Weight: 64.468 kg

DRUGS (4)
  1. NORVASC [Concomitant]
     Indication: BLOOD PRESSURE
  2. PLAN B ONE-STEP [Suspect]
     Indication: POST COITAL CONTRACEPTION
     Route: 048
     Dates: start: 20110223, end: 20110223
  3. BENICAR [Concomitant]
     Indication: BLOOD PRESSURE
  4. LEXAPRO [Concomitant]
     Indication: ANTIDEPRESSANT THERAPY

REACTIONS (4)
  - VOMITING [None]
  - HEADACHE [None]
  - FATIGUE [None]
  - NAUSEA [None]
